FAERS Safety Report 7105977-1 (Version None)
Quarter: 2010Q4

REPORT INFORMATION
  Report Type: 
  Country: None (occurrence: None)
  Receive Date: 20101116
  Receipt Date: 20101115
  Transmission Date: 20110411
  Serious: Yes (Death, Hospitalization, Disabling)
  Sender: FDA-Public Use
  Company Number: US-BAYER-201012466NA

PATIENT
  Age: 64 Year
  Sex: Male

DRUGS (2)
  1. NEXAVAR [Suspect]
     Indication: HEPATIC NEOPLASM MALIGNANT
     Dosage: TOTAL DAILY DOSE: 800 MG  UNIT DOSE: 200 MG
     Route: 048
     Dates: start: 20100118, end: 20100218
  2. SIMVASTATIN [Concomitant]
     Indication: BLOOD CHOLESTEROL ABNORMAL

REACTIONS (7)
  - COORDINATION ABNORMAL [None]
  - DIARRHOEA [None]
  - DRUG HYPERSENSITIVITY [None]
  - DRY SKIN [None]
  - GAIT DISTURBANCE [None]
  - HEPATIC NEOPLASM MALIGNANT [None]
  - MUSCULAR WEAKNESS [None]
